FAERS Safety Report 18995964 (Version 1)
Quarter: 2021Q1

REPORT INFORMATION
  Report Type: Spontaneous
  Country: CH (occurrence: CH)
  Receive Date: 20210311
  Receipt Date: 20210311
  Transmission Date: 20210420
  Serious: Yes (Hospitalization)
  Sender: FDA-Public Use
  Company Number: CH-ABBVIE-21K-151-3806191-00

PATIENT
  Age: 74 Year
  Sex: Female

DRUGS (2)
  1. VENCLYXTO [Suspect]
     Active Substance: VENETOCLAX
     Indication: PRODUCT USED FOR UNKNOWN INDICATION
     Route: 048
     Dates: start: 20200714, end: 2020
  2. VENCLYXTO [Suspect]
     Active Substance: VENETOCLAX
     Route: 048
     Dates: start: 2020, end: 20200820

REACTIONS (5)
  - Pseudomonas infection [Unknown]
  - Cardiac failure [Recovered/Resolved]
  - Oedema [Unknown]
  - Infection [Unknown]
  - Dermatitis [Unknown]

NARRATIVE: CASE EVENT DATE: 2020
